FAERS Safety Report 4787129-3 (Version None)
Quarter: 2005Q4

REPORT INFORMATION
  Report Type: 
  Country: None (occurrence: None)
  Receive Date: 20051004
  Receipt Date: 20050511
  Transmission Date: 20060501
  Serious: Yes (Hospitalization)
  Sender: FDA-Public Use
  Company Number: FR-MERCK-0505FRA00029

PATIENT
  Age: 77 Year
  Sex: Female
  Weight: 83 kg

DRUGS (11)
  1. ZETIA [Suspect]
     Route: 048
     Dates: start: 20050403, end: 20050426
  2. LAMOTRIGINE [Suspect]
     Indication: CONVULSION
     Route: 048
     Dates: start: 20050403, end: 20050409
  3. LAMOTRIGINE [Suspect]
     Route: 048
     Dates: start: 20050401, end: 20050422
  4. LAMOTRIGINE [Suspect]
     Route: 048
     Dates: start: 20050423, end: 20050426
  5. TRIMETAZIDINE HYDROCHLORIDE [Concomitant]
     Route: 048
     Dates: end: 20050426
  6. FUROSEMIDE [Concomitant]
     Indication: CARDIOMYOPATHY
     Route: 048
     Dates: end: 20050426
  7. CLOPIDOGREL BISULFATE [Concomitant]
     Route: 048
  8. BISOPROLOL [Concomitant]
     Route: 048
  9. LEVOTHYROXINE SODIUM [Concomitant]
     Indication: HYPOTHYROIDISM
     Route: 048
  10. INSULIN [Concomitant]
     Indication: DIABETES MELLITUS
     Route: 058
  11. IRBESARTAN [Concomitant]
     Indication: HYPERTENSION
     Route: 048

REACTIONS (5)
  - AGGRESSION [None]
  - COMA [None]
  - COORDINATION ABNORMAL [None]
  - ENCEPHALOPATHY [None]
  - HYPERAMMONAEMIA [None]
